FAERS Safety Report 7515700-4 (Version None)
Quarter: 2011Q2

REPORT INFORMATION
  Report Type: 
  Country: None (occurrence: None)
  Receive Date: 20110601
  Receipt Date: 20110527
  Transmission Date: 20111010
  Serious: Yes (Death, Hospitalization)
  Sender: FDA-Public Use
  Company Number: US-AMGEN-USASP2011023286

PATIENT
  Age: 65 Year
  Sex: Male
  Weight: 86.168 kg

DRUGS (4)
  1. PREDNISONE [Concomitant]
  2. CARBOPLATIN [Concomitant]
     Dosage: 547 MG, UNK
     Route: 042
     Dates: start: 20110329, end: 20110329
  3. ETOPOSIDE [Concomitant]
     Dosage: 160 MG, QD
     Route: 042
     Dates: start: 20110329, end: 20110330
  4. NEUPOGEN [Suspect]
     Indication: CHEMOTHERAPY
     Dosage: UNK
     Route: 058
     Dates: start: 20110406, end: 20110406

REACTIONS (3)
  - SMALL CELL LUNG CANCER STAGE UNSPECIFIED [None]
  - RESPIRATORY FAILURE [None]
  - CHRONIC OBSTRUCTIVE PULMONARY DISEASE [None]
